FAERS Safety Report 17244240 (Version 1)
Quarter: 2020Q1

REPORT INFORMATION
  Report Type: Report from Study
  Country: US (occurrence: US)
  Receive Date: 20200107
  Receipt Date: 20200107
  Transmission Date: 20200409
  Serious: Yes (Hospitalization, Other)
  Sender: FDA-Public Use
  Company Number: US-GILEAD-2019-0442269

PATIENT
  Age: 69 Year
  Sex: Male
  Weight: 86.17 kg

DRUGS (1)
  1. IDELALISIB [Suspect]
     Active Substance: IDELALISIB
     Indication: B-CELL LYMPHOMA
     Dosage: 150 MG, QD
     Route: 048
     Dates: start: 20170328

REACTIONS (5)
  - Weight decreased [Unknown]
  - Off label use [Not Recovered/Not Resolved]
  - Decreased appetite [Unknown]
  - Renal failure [Unknown]
  - Hypophagia [Unknown]

NARRATIVE: CASE EVENT DATE: 20170328
